FAERS Safety Report 11242834 (Version 1)
Quarter: 2015Q3

REPORT INFORMATION
  Report Type: Spontaneous
  Country: US (occurrence: None)
  Receive Date: 20150702
  Receipt Date: 20150702
  Transmission Date: 20151125
  Serious: Yes (Death, Other)
  Sender: FDA-Public Use
  Company Number: INS201506-000268

PATIENT
  Age: 82 Year
  Sex: Male

DRUGS (1)
  1. SUBSYS [Suspect]
     Active Substance: FENTANYL
     Indication: BREAKTHROUGH PAIN
     Dosage: 200 MCG, EVERTY 4 HOURS AS NEEDED
     Dates: start: 20140812

REACTIONS (2)
  - Dementia [None]
  - Malaise [None]

NARRATIVE: CASE EVENT DATE: 20150612
